FAERS Safety Report 12173490 (Version 3)
Quarter: 2016Q1

REPORT INFORMATION
  Report Type: Spontaneous
  Country: US (occurrence: US)
  Receive Date: 20160311
  Receipt Date: 20160317
  Transmission Date: 20160526
  Serious: No
  Sender: FDA-Public Use
  Company Number: US-GALDERMA-US15000911

PATIENT
  Age: 37 Year
  Sex: Male

DRUGS (5)
  1. CLARITIN (LLORATADINE) [Concomitant]
     Indication: SEASONAL ALLERGY
     Route: 048
  2. GRANDPA^S THYLOX ACNE TREATMENT SOAP [Concomitant]
     Indication: THERAPEUTIC SKIN CARE TOPICAL
     Route: 061
  3. TRI-LUMA [Suspect]
     Active Substance: FLUOCINOLONE ACETONIDE\HYDROQUINONE\TRETINOIN
     Route: 061
  4. TRI-LUMA [Suspect]
     Active Substance: FLUOCINOLONE ACETONIDE\HYDROQUINONE\TRETINOIN
     Indication: SKIN HYPERPIGMENTATION
     Route: 061
     Dates: start: 20150219, end: 20150222
  5. CETAPHIL GENTLE CLEANSING ANTIBACTERIAL BAR [Concomitant]
     Active Substance: TRICLOSAN
     Indication: THERAPEUTIC SKIN CARE TOPICAL
     Route: 061

REACTIONS (2)
  - Erythema [Recovering/Resolving]
  - Product use issue [Recovering/Resolving]

NARRATIVE: CASE EVENT DATE: 20150219
